FAERS Safety Report 6788471-7 (Version None)
Quarter: 2010Q2

REPORT INFORMATION
  Report Type: 
  Country: None (occurrence: None)
  Receive Date: 20100623
  Receipt Date: 20080325
  Transmission Date: 20101027
  Serious: No
  Sender: FDA-Public Use
  Company Number: US-PFIZER INC-2008027251

PATIENT
  Sex: Male
  Weight: 60.454 kg

DRUGS (3)
  1. XALATAN [Suspect]
     Indication: VISUAL IMPAIRMENT
     Route: 031
     Dates: start: 20070101
  2. TIMOLOL MALEATE [Concomitant]
     Dates: start: 20010101
  3. ZOCOR [Concomitant]

REACTIONS (1)
  - EYE IRRITATION [None]
